FAERS Safety Report 12093847 (Version 2)
Quarter: 2016Q1

REPORT INFORMATION
  Report Type: Report from Study
  Country: US (occurrence: US)
  Receive Date: 20160219
  Receipt Date: 20160224
  Transmission Date: 20160526
  Serious: Yes (Hospitalization, Other)
  Sender: FDA-Public Use
  Company Number: US-ASTELLAS-2005002101

PATIENT
  Age: 61 Year
  Sex: Male

DRUGS (4)
  1. ERLOTINIB [Suspect]
     Active Substance: ERLOTINIB
     Indication: PANCREATIC CARCINOMA
     Dosage: 150 MG, CYCLIC, ON DAYS 1-5, 8-12 AND 15-26 OF 28 DAY CYCLE
     Route: 048
     Dates: start: 20050323, end: 20050918
  2. BEVACIZUMAB [Suspect]
     Active Substance: BEVACIZUMAB
     Indication: PANCREATIC CARCINOMA
     Dosage: 10 MG/KG, CYCLIC, OVER 60-90 MIN. ON DAYS 1 AND 15 OF 28 DAY CYCLE
     Route: 042
     Dates: start: 20050323, end: 20050907
  3. GEMCITABINE [Suspect]
     Active Substance: GEMCITABINE\GEMCITABINE HYDROCHLORIDE
     Indication: PANCREATIC CARCINOMA
     Dosage: 1000 MG/M2, CYCLIC, OVER 30 MIN ON DAYS 1, 8, 15 OF 28 DAY CYCLE.
     Route: 042
     Dates: start: 20050323, end: 200509
  4. DIURETIC                           /00022001/ [Concomitant]
     Active Substance: HYDROCHLOROTHIAZIDE
     Indication: PRODUCT USED FOR UNKNOWN INDICATION
     Dosage: UNK UNK, UNKNOWN FREQ.
     Route: 065

REACTIONS (5)
  - Acute kidney injury [Unknown]
  - Proteinuria [Unknown]
  - Thrombotic microangiopathy [Unknown]
  - Platelet count decreased [Unknown]
  - Renal failure [Unknown]

NARRATIVE: CASE EVENT DATE: 20050921
